FAERS Safety Report 8133018-6 (Version None)
Quarter: 2012Q1

REPORT INFORMATION
  Report Type: 
  Country: None (occurrence: None)
  Receive Date: 20120213
  Receipt Date: 20120203
  Transmission Date: 20120608
  Serious: Yes (Other)
  Sender: FDA-Public Use
  Company Number: PHHY2012JP006227

PATIENT
  Age: 48 Year
  Sex: Female

DRUGS (4)
  1. PREDNISOLONE [Concomitant]
     Dosage: 30 MG, PER DAY
     Route: 048
  2. CYCLOSPORINE [Suspect]
     Indication: PYODERMA GANGRENOSUM
     Dosage: UNK UKN, UNK
  3. PREDNISOLONE [Concomitant]
     Dosage: 5 MG, PER DAY
     Route: 048
  4. PREDNISOLONE [Concomitant]
     Indication: PYODERMA GANGRENOSUM
     Dosage: 8 MG, PER DAY
     Route: 048

REACTIONS (10)
  - LOCAL SWELLING [None]
  - RENAL FAILURE ACUTE [None]
  - NEUTROPHIL COUNT INCREASED [None]
  - GAIT DISTURBANCE [None]
  - CONDITION AGGRAVATED [None]
  - SKIN ULCER [None]
  - C-REACTIVE PROTEIN INCREASED [None]
  - PAIN IN EXTREMITY [None]
  - PYREXIA [None]
  - WHITE BLOOD CELL COUNT INCREASED [None]
